FAERS Safety Report 10098181 (Version 2)
Quarter: 2014Q2

REPORT INFORMATION
  Report Type: Spontaneous
  Country: US (occurrence: None)
  Receive Date: 20140421
  Receipt Date: 20140613
  Transmission Date: 20141212
  Serious: Yes (Hospitalization)
  Sender: FDA-Public Use
  Company Number: SYM-2014-19538

PATIENT
  Age: 35 Year
  Sex: Male

DRUGS (2)
  1. ATIVAN [Suspect]
  2. FETZIMA [Suspect]
     Route: 048

REACTIONS (3)
  - Tachycardia [None]
  - Chest pain [None]
  - Pericarditis [None]
